FAERS Safety Report 6840829-3 (Version None)
Quarter: 2010Q3

REPORT INFORMATION
  Report Type: 
  Country: None (occurrence: None)
  Receive Date: 20100714
  Receipt Date: 20100706
  Transmission Date: 20110219
  Serious: Yes (Other)
  Sender: FDA-Public Use
  Company Number: BR-ABBOTT-10P-020-0655822-00

PATIENT
  Sex: Female
  Weight: 51 kg

DRUGS (5)
  1. HUMIRA [Suspect]
     Indication: RHEUMATOID ARTHRITIS
     Route: 058
     Dates: start: 20100315
  2. INTERFERON [Suspect]
     Indication: HEPATITIS C
     Dosage: 180MCG / 0.5ML, 1 IN 7 D
     Route: 058
  3. RIBAVIRIN [Concomitant]
     Indication: HEPATITIS C
     Route: 048
  4. PREDNISONE TAB [Concomitant]
     Indication: RHEUMATOID ARTHRITIS
     Route: 048
  5. REUQUINOL [Concomitant]
     Indication: RHEUMATOID ARTHRITIS
     Dosage: 1 TABLET IN EVEN DAYS, 1/2 IN ODD DAYS
     Route: 048

REACTIONS (3)
  - ANAEMIA [None]
  - DEPRESSION [None]
  - HAEMOGLOBIN DECREASED [None]
